FAERS Safety Report 8605550-X (Version None)
Quarter: 2012Q3

REPORT INFORMATION
  Report Type: 
  Country: None (occurrence: None)
  Receive Date: 20120820
  Receipt Date: 20120817
  Transmission Date: 20120928
  Serious: Yes (Other)
  Sender: FDA-Public Use
  Company Number: US-PFIZER INC-2011281671

PATIENT
  Age: 66 Year
  Sex: Female

DRUGS (10)
  1. JANUVIA [Concomitant]
     Dosage: UNK
  2. PROTONIX [Suspect]
     Indication: GASTRIC DISORDER
     Dosage: 40 MG, 2X/DAY
  3. LATANOPROST [Suspect]
     Indication: CATARACT OPERATION
     Dosage: 0.05% 1 DROP EACH EYE DAILY
  4. BUPROPION [Concomitant]
     Dosage: UNK
  5. TRILIPIX [Concomitant]
     Dosage: UNK
  6. CYMBALTA [Concomitant]
     Dosage: UNK
  7. DOXYCYCLINE [Concomitant]
     Dosage: UNK
  8. SIMVASTATIN [Concomitant]
     Dosage: UNK
  9. CELEBREX [Suspect]
     Dosage: 200 MG, 1X/DAY
  10. LOSARTAN [Concomitant]
     Dosage: UNK

REACTIONS (1)
  - STAPHYLOCOCCAL INFECTION [None]
